FAERS Safety Report 7096262-5 (Version None)
Quarter: 2010Q4

REPORT INFORMATION
  Report Type: 
  Country: None (occurrence: None)
  Receive Date: 20101109
  Receipt Date: 20101109
  Transmission Date: 20110411
  Serious: Yes (Other)
  Sender: FDA-Public Use
  Company Number: None

PATIENT
  Age: 75 Year
  Sex: Female
  Weight: 62.5964 kg

DRUGS (2)
  1. SOTALOL HCL [Suspect]
     Indication: ATRIAL FIBRILLATION
     Dosage: 120MG TWICE A DAY PO
     Route: 048
     Dates: start: 20101028, end: 20101101
  2. BETAPACE AF [Suspect]

REACTIONS (5)
  - DIZZINESS [None]
  - HEADACHE [None]
  - HEART RATE IRREGULAR [None]
  - PRODUCT SUBSTITUTION ISSUE [None]
  - URTICARIA [None]
